FAERS Safety Report 12954358 (Version 2)
Quarter: 2016Q4

REPORT INFORMATION
  Report Type: Spontaneous
  Country: US (occurrence: US)
  Receive Date: 20161118
  Receipt Date: 20161205
  Transmission Date: 20170207
  Serious: No
  Sender: FDA-Public Use
  Company Number: US-PFIZER INC-2016537685

PATIENT
  Age: 59 Year
  Sex: Male

DRUGS (2)
  1. LYRICA [Suspect]
     Active Substance: PREGABALIN
     Dosage: ONE TO BE TAKEN AT 6 AM, 1 AT 3 PM AND, AND 2 AT BEDTIME
  2. GABAPENTIN. [Suspect]
     Active Substance: GABAPENTIN
     Dosage: 300 MG, DAILY

REACTIONS (3)
  - Drug ineffective [Unknown]
  - Paraesthesia [Unknown]
  - Burning sensation [Unknown]
